FAERS Safety Report 8472551 (Version 3)
Quarter: 2014Q1

REPORT INFORMATION
  Report Type: Spontaneous
  Country: JP (occurrence: JP)
  Receive Date: 20120322
  Receipt Date: 20140310
  Transmission Date: 20141002
  Serious: Yes (Hospitalization)
  Sender: FDA-Public Use
  Company Number: JP-GLAXOSMITHKLINE-B0778391A

PATIENT
  Age: 44 Year
  Sex: Female
  Weight: 67 kg

DRUGS (18)
  1. LAMICTAL [Suspect]
     Indication: BIPOLAR DISORDER
     Dosage: 25MG PER DAY
     Route: 048
     Dates: start: 20111123, end: 20111206
  2. LAMICTAL [Suspect]
     Indication: BIPOLAR DISORDER
     Dosage: 50MG PER DAY
     Route: 048
     Dates: start: 20111207, end: 20111221
  3. LAMICTAL [Suspect]
     Indication: BIPOLAR DISORDER
     Dosage: 100MG PER DAY
     Route: 048
     Dates: start: 20111222, end: 20111223
  4. UNKNOWN DRUG [Concomitant]
     Route: 031
  5. ALLEGRA [Concomitant]
     Route: 048
  6. ALOSENN [Concomitant]
     Route: 048
  7. PAXIL [Concomitant]
     Route: 048
  8. MEILAX [Concomitant]
     Route: 048
  9. ABILIFY [Concomitant]
     Route: 048
     Dates: start: 20110927
  10. SOLANAX [Concomitant]
     Route: 048
  11. GOODMIN [Concomitant]
     Route: 048
  12. CHINESE MEDICINE [Concomitant]
     Route: 048
  13. LOXONIN [Concomitant]
     Route: 048
  14. DEPAS [Concomitant]
     Route: 048
  15. CALONAL [Concomitant]
     Route: 048
  16. NEULEPTIL [Concomitant]
     Route: 048
  17. AMOBAN [Concomitant]
     Route: 048
  18. OMEPRAZOLE [Concomitant]
     Route: 048

REACTIONS (14)
  - Stevens-Johnson syndrome [Recovered/Resolved]
  - Erythema multiforme [Unknown]
  - Pyrexia [Unknown]
  - Erythema [Unknown]
  - Epidermal necrosis [Unknown]
  - Skin degenerative disorder [Unknown]
  - Liver disorder [Unknown]
  - Dry skin [Unknown]
  - Pruritus [Unknown]
  - Ophthalmic herpes simplex [Unknown]
  - Lichenification [Unknown]
  - Cheilitis [Unknown]
  - Eyelid erosion [Unknown]
  - Ocular hyperaemia [Unknown]
